FAERS Safety Report 5286392-2 (Version None)
Quarter: 2007Q2

REPORT INFORMATION
  Report Type: 
  Country: None (occurrence: None)
  Receive Date: 20070404
  Receipt Date: 20070330
  Transmission Date: 20071010
  Serious: Yes (Other)
  Sender: FDA-Public Use
  Company Number: 2006UW11234

PATIENT
  Sex: Male
  Weight: 136.4 kg

DRUGS (5)
  1. SEROQUEL [Suspect]
     Indication: DEPRESSION
     Route: 048
  2. ZYPREXA [Suspect]
     Dates: start: 20010101, end: 20050101
  3. FAST-INS DIET PILLS [Concomitant]
     Dates: start: 19990101, end: 20030101
  4. RISPERDAL [Concomitant]
     Dates: start: 19910101
  5. PROZAC [Concomitant]

REACTIONS (3)
  - DIABETES MELLITUS INSULIN-DEPENDENT [None]
  - DIABETIC COMA [None]
  - PANCREATITIS [None]
